FAERS Safety Report 5394493-3 (Version None)
Quarter: 2007Q3

REPORT INFORMATION
  Report Type: 
  Country: None (occurrence: None)
  Receive Date: 20070723
  Receipt Date: 20070716
  Transmission Date: 20080115
  Serious: Yes (Hospitalization)
  Sender: FDA-Public Use
  Company Number: US-ASTRAZENECA-2007UW16506

PATIENT
  Age: 571 Month
  Sex: Male
  Weight: 100 kg

DRUGS (5)
  1. SEROQUEL [Suspect]
     Indication: SCHIZOAFFECTIVE DISORDER
     Route: 048
     Dates: start: 19970801
  2. SEROQUEL [Suspect]
     Route: 048
     Dates: start: 19970801
  3. SEROQUEL [Suspect]
     Route: 048
     Dates: start: 19970801
  4. RISPERDAL [Concomitant]
     Indication: SCHIZOAFFECTIVE DISORDER
     Dates: start: 19980101, end: 20030101
  5. ABILIFY [Concomitant]
     Route: 048
     Dates: start: 19790101

REACTIONS (3)
  - DIABETES MELLITUS [None]
  - LEG AMPUTATION [None]
  - TOE AMPUTATION [None]
